FAERS Safety Report 7569723-X (Version None)
Quarter: 2011Q2

REPORT INFORMATION
  Report Type: 
  Country: None (occurrence: None)
  Receive Date: 20110621
  Receipt Date: 20110621
  Transmission Date: 20111010
  Serious: Yes (Life-Threatening, Hospitalization, Disabling, Other)
  Sender: FDA-Public Use
  Company Number: None

PATIENT
  Sex: Male
  Weight: 91.6266 kg

DRUGS (2)
  1. DEPAKENE [Suspect]
     Indication: HYPOGLYCAEMIA
     Dosage: 1000 MG QID PO
     Route: 048
     Dates: start: 19820101, end: 20100101
  2. DEPAKENE [Suspect]
     Indication: CONVULSION
     Dosage: 1000 MG QID PO
     Route: 048
     Dates: start: 19820101, end: 20100101

REACTIONS (6)
  - ENCEPHALOPATHY [None]
  - ADVERSE DRUG REACTION [None]
  - CEREBRAL ATROPHY [None]
  - HYPERAMMONAEMIA [None]
  - ACIDOSIS [None]
  - DEMENTIA [None]
